FAERS Safety Report 19489201 (Version 1)
Quarter: 2021Q3

REPORT INFORMATION
  Report Type: Spontaneous
  Country: FR (occurrence: FR)
  Receive Date: 20210703
  Receipt Date: 20210703
  Transmission Date: 20211014
  Serious: Yes (Hospitalization, Other)
  Sender: FDA-Public Use
  Company Number: FR-SHILPA MEDICARE LIMITED-SML-FR-2021-00866

PATIENT
  Age: 68 Year
  Sex: Male
  Weight: 98 kg

DRUGS (1)
  1. IMATINIB, UNKNOWN [Suspect]
     Active Substance: IMATINIB
     Indication: CHRONIC MYELOID LEUKAEMIA
     Route: 048
     Dates: start: 20210121, end: 20210331

REACTIONS (1)
  - Ejection fraction decreased [Not Recovered/Not Resolved]

NARRATIVE: CASE EVENT DATE: 20210319
